FAERS Safety Report 9026440 (Version 1)
Quarter: 2013Q1

REPORT INFORMATION
  Report Type: Spontaneous
  Country: US (occurrence: None)
  Receive Date: 20130107
  Receipt Date: 20130107
  Transmission Date: 20140127
  Serious: Yes (Disabling)
  Sender: FDA-Public Use
  Company Number: 2013/001

PATIENT
  Sex: Female
  Weight: 60 kg

DRUGS (7)
  1. AMLODIPINE (NO PREF. NAME) 5 MG [Suspect]
     Indication: HYPERTENSION
     Route: 048
     Dates: start: 20121204, end: 20121213
  2. AZATHIOPRINE [Concomitant]
  3. CALCIUM CARBONATE (CALCICHEW) [Concomitant]
  4. ATORVASTATIN CALCIUM [Concomitant]
  5. OMEPRAZOLE [Concomitant]
  6. BUDESONIDE [Concomitant]
  7. FORMOTEROL FUMARATE DIHYDRATE (SYMBICORT) [Concomitant]

REACTIONS (2)
  - Confusional state [None]
  - Memory impairment [None]
